FAERS Safety Report 24870882 (Version 1)
Quarter: 2025Q1

REPORT INFORMATION
  Report Type: Report from Study
  Country: CA (occurrence: CA)
  Receive Date: 20250121
  Receipt Date: 20250121
  Transmission Date: 20250409
  Serious: Yes (Other)
  Sender: ABBVIE
  Company Number: CA-ABBVIE-6090455

PATIENT
  Age: 42 Year
  Sex: Female

DRUGS (1)
  1. QULIPTA [Suspect]
     Active Substance: ATOGEPANT
     Indication: Migraine
     Dosage: FORM STRENGTH: 60 MG
     Route: 048
     Dates: start: 20241219

REACTIONS (1)
  - Oophorectomy [Unknown]

NARRATIVE: CASE EVENT DATE: 20250110
